FAERS Safety Report 21522071 (Version 1)
Quarter: 2022Q4

REPORT INFORMATION
  Report Type: Spontaneous
  Country: US (occurrence: None)
  Receive Date: 20221027
  Receipt Date: 20221027
  Transmission Date: 20230113
  Serious: Yes (Hospitalization)
  Sender: FDA-Public Use
  Company Number: None

PATIENT
  Age: 73 Year
  Sex: Male

DRUGS (1)
  1. IOHEXOL [Suspect]
     Active Substance: IOHEXOL
     Indication: Computerised tomogram
     Dosage: 50 ML ONCE IV
     Route: 040
     Dates: start: 20220818, end: 20220818

REACTIONS (4)
  - Dyspnoea [None]
  - Gait disturbance [None]
  - Respiratory depression [None]
  - Palpitations [None]

NARRATIVE: CASE EVENT DATE: 20220819
